FAERS Safety Report 4709257-0 (Version None)
Quarter: 2005Q3

REPORT INFORMATION
  Report Type: 
  Country: None (occurrence: None)
  Receive Date: 20050706
  Receipt Date: 20050617
  Transmission Date: 20060218
  Serious: Yes (Hospitalization)
  Sender: FDA-Public Use
  Company Number: DSA_26720_2005

PATIENT
  Age: 71 Year
  Sex: Female

DRUGS (10)
  1. DILTIAZEM [Suspect]
     Indication: ATRIAL FIBRILLATION
     Dosage: 90 MG BID PO
     Route: 048
     Dates: start: 20050301, end: 20050414
  2. AMOXICILLIN AND CLAVULANATE POTASSIUM [Suspect]
     Indication: ATRIAL FIBRILLATION
     Dosage: DF TID IV
     Route: 042
     Dates: start: 20050408, end: 20050409
  3. AMOXICILLIN AND CLAVULANATE POTASSIUM [Suspect]
     Indication: DERMATITIS INFECTED
     Dosage: DF TID
     Dates: start: 20050410, end: 20050414
  4. FRAXIPARINE [Concomitant]
  5. ARIMIDEX [Concomitant]
  6. RISPERDAL [Concomitant]
  7. OXAZEPAM [Concomitant]
  8. SIMVASTATIN [Concomitant]
  9. TORSEMIDE [Concomitant]
  10. NEXIUM [Concomitant]

REACTIONS (4)
  - ALANINE AMINOTRANSFERASE INCREASED [None]
  - DERMATITIS INFECTED [None]
  - HENOCH-SCHONLEIN PURPURA [None]
  - LEUKOCYTOCLASTIC VASCULITIS [None]
